FAERS Safety Report 4616369-9 (Version None)
Quarter: 2005Q1

REPORT INFORMATION
  Report Type: 
  Country: None (occurrence: None)
  Receive Date: 20050321
  Receipt Date: 20050308
  Transmission Date: 20050727
  Serious: Yes (Other)
  Sender: FDA-Public Use
  Company Number: HQWYE552922JUN04

PATIENT
  Age: 41 Year
  Sex: Female
  Weight: 106.69 kg

DRUGS (32)
  1. EFFEXOR XR [Suspect]
     Indication: DEPRESSION
     Dosage: SEE IMAGE
     Route: 048
     Dates: start: 20010101, end: 20010101
  2. EFFEXOR XR [Suspect]
     Indication: DEPRESSION
     Dosage: SEE IMAGE
     Route: 048
     Dates: start: 20010501, end: 20010101
  3. EFFEXOR XR [Suspect]
     Indication: DEPRESSION
     Dosage: SEE IMAGE
     Route: 048
     Dates: start: 20010101, end: 20020101
  4. EFFEXOR XR [Suspect]
     Indication: DEPRESSION
     Dosage: SEE IMAGE
     Route: 048
     Dates: start: 20020101, end: 20020101
  5. EFFEXOR XR [Suspect]
     Indication: DEPRESSION
     Dosage: SEE IMAGE
     Route: 048
     Dates: start: 20020101, end: 20021201
  6. DIOVAN HCT [Concomitant]
  7. NEXIUM [Concomitant]
  8. DITROPAN XL (OXYBUTYNIN) [Concomitant]
  9. CELEBREX [Concomitant]
  10. ZYRTEC [Concomitant]
  11. NEURONTIN [Concomitant]
  12. MACROBID [Concomitant]
  13. NAPROXEN [Concomitant]
  14. SERZONE [Concomitant]
  15. SMZ-TMP DS (SULFAMETHOXAZOLE/TRIMETHOPRIM) [Concomitant]
  16. LIQUIBID (GUAIFENESIN) [Concomitant]
  17. LEVAQUIN [Concomitant]
  18. CEFTIN [Concomitant]
  19. CLARITIN [Concomitant]
  20. WELLBUTRIN [Concomitant]
  21. CLONAZEPAM [Concomitant]
  22. SKELAXIN [Concomitant]
  23. HYOSCYAMINE (HYOSCYAMINE) [Concomitant]
  24. NASONEX [Concomitant]
  25. ACLOVATE (ALCLOMETASONE DIPROPIONATE) [Concomitant]
  26. TRIMOX [Concomitant]
  27. PROMETRIUM [Concomitant]
  28. TEQUIN [Concomitant]
  29. CYCLOBENZAPRINE HCL [Concomitant]
  30. CEFUROXIME [Concomitant]
  31. AUGMENTAN ORAL (AMOXICILLIN TRIHYDRATE/CLAVULANATE POTASSIUM) [Concomitant]
  32. PAXIL [Concomitant]

REACTIONS (27)
  - ANXIETY [None]
  - ASTHENIA [None]
  - BRUXISM [None]
  - CHEST PAIN [None]
  - CONFUSIONAL STATE [None]
  - DISTURBANCE IN ATTENTION [None]
  - DIZZINESS [None]
  - DRUG HYPERSENSITIVITY [None]
  - DRUG WITHDRAWAL SYNDROME [None]
  - DRY MOUTH [None]
  - DYSPHEMIA [None]
  - EMOTIONAL DISORDER [None]
  - HEADACHE [None]
  - HEART RATE INCREASED [None]
  - HYPERTENSION [None]
  - INSOMNIA [None]
  - MENTAL IMPAIRMENT [None]
  - NAUSEA [None]
  - NECK PAIN [None]
  - OEDEMA PERIPHERAL [None]
  - RESTLESSNESS [None]
  - SINUS DISORDER [None]
  - SMOKER [None]
  - SPEECH DISORDER [None]
  - THINKING ABNORMAL [None]
  - TINNITUS [None]
  - VISION BLURRED [None]
